FAERS Safety Report 6186959-3 (Version None)
Quarter: 2009Q2

REPORT INFORMATION
  Report Type: 
  Country: None (occurrence: None)
  Receive Date: 20090512
  Receipt Date: 20090504
  Transmission Date: 20091009
  Serious: Yes (Hospitalization)
  Sender: FDA-Public Use
  Company Number: FR-ELI_LILLY_AND_COMPANY-FR200901000153

PATIENT
  Age: 78 Year
  Sex: Female
  Weight: 65 kg

DRUGS (4)
  1. FORTEO [Suspect]
     Indication: OSTEOPOROSIS
     Dosage: 20 UG, DAILY (1/D)
     Route: 058
     Dates: start: 20080729, end: 20081224
  2. FORTEO [Suspect]
     Dosage: 20 UG, DAILY (1/D)
     Route: 058
  3. LAROXYL [Concomitant]
     Indication: SCIATICA
     Dosage: 25 MG, 3/D
     Route: 048
     Dates: start: 20010101
  4. UVEDOSE [Concomitant]
     Indication: SCIATICA
     Dosage: BULB 1X/3 MONTH, OTHER
     Route: 048
     Dates: start: 20081218

REACTIONS (2)
  - FALL [None]
  - FEMORAL NECK FRACTURE [None]
